FAERS Safety Report 8180706-1 (Version None)
Quarter: 2012Q1

REPORT INFORMATION
  Report Type: 
  Country: None (occurrence: None)
  Receive Date: 20120221
  Receipt Date: 20120214
  Transmission Date: 20120608
  Serious: Yes (Hospitalization, Other)
  Sender: FDA-Public Use
  Company Number: 2012031169

PATIENT
  Age: 35 Year
  Sex: Female

DRUGS (1)
  1. PRIVIGEN [Suspect]
     Indication: CHRONIC INFLAMMATORY DEMYELINATING POLYRADICULONEUROPATHY
     Dosage: (INTRAVENOUS (NOT OTHERWISE SPECIFIED))
     Route: 042

REACTIONS (9)
  - PRE-ECLAMPSIA [None]
  - HYPERTENSION [None]
  - MUSCULAR WEAKNESS [None]
  - ABASIA [None]
  - MATERNAL EXPOSURE DURING PREGNANCY [None]
  - ACTIVITIES OF DAILY LIVING IMPAIRED [None]
  - CAESAREAN SECTION [None]
  - HEPATIC ENZYME INCREASED [None]
  - PROTEINURIA [None]
